FAERS Safety Report 6535199-4 (Version None)
Quarter: 2009Q4

REPORT INFORMATION
  Report Type: 
  Country: None (occurrence: None)
  Receive Date: 20091231
  Receipt Date: 20091217
  Transmission Date: 20100525
  Serious: Yes (Death)
  Sender: FDA-Public Use
  Company Number: 088

PATIENT
  Age: 54 Year
  Sex: Female

DRUGS (1)
  1. FAZACLO ODT [Suspect]
     Dates: start: 20061113, end: 20061209

REACTIONS (7)
  - ACUTE MYOCARDIAL INFARCTION [None]
  - CARDIAC ARREST [None]
  - LETHARGY [None]
  - PNEUMONIA [None]
  - RETCHING [None]
  - SHOCK [None]
  - VOMITING [None]
